FAERS Safety Report 5513118-7 (Version None)
Quarter: 2007Q4

REPORT INFORMATION
  Report Type: 
  Country: None (occurrence: None)
  Receive Date: 20071112
  Receipt Date: 20071101
  Transmission Date: 20080405
  Serious: Yes (Other)
  Sender: FDA-Public Use
  Company Number: US-ROCHE-529097

PATIENT
  Age: 39 Year
  Sex: Male
  Weight: 67.1 kg

DRUGS (9)
  1. RIBAVIRIN [Suspect]
     Indication: HEPATITIS C
     Route: 048
     Dates: start: 20060320, end: 20070402
  2. PEG-INTERFERON A-2A (RO 25-8310) [Suspect]
     Indication: HEPATITIS C
     Dosage: ADMINISTERED Q WEEK.
     Route: 058
     Dates: start: 20060320, end: 20070312
  3. TRUVADA [Concomitant]
     Dosage: 200 / 300 MG DAILY. APPROXIMATE DURATION OF USE: 2 YEARS.
  4. ABACAVIR [Concomitant]
     Dosage: APPROXIMATE DURATION OF USE: TWO AND A HALF YEARS.
  5. SUSTIVA [Concomitant]
     Dosage: APPROXIMATE DURATION OF USE: FOUR AND THREE QUARTER YEARS.
  6. VORICONAZOLE [Concomitant]
     Dosage: APPROXIMATE DURATION OF USE: 4 YEARS.
  7. LISINOPRIL [Concomitant]
     Dosage: APPROXIMATE DURATION OF USE: 4 YEARS.
  8. AMITRIPTYLINE HCL [Concomitant]
     Dosage: APPROXIMATE DURATION OF USE: TWO AND A HALF YEARS.
  9. REMERON [Concomitant]
     Dosage: ADMINISTERED AT BEDTIME. APPROXIMATE DURATION OF USE: 3 MONTHS.

REACTIONS (1)
  - SQUAMOUS CELL CARCINOMA [None]
